FAERS Safety Report 6892257-2 (Version None)
Quarter: 2010Q3

REPORT INFORMATION
  Report Type: 
  Country: None (occurrence: None)
  Receive Date: 20100731
  Receipt Date: 20080311
  Transmission Date: 20110219
  Serious: No
  Sender: FDA-Public Use
  Company Number: US-PFIZER INC-2008024645

PATIENT
  Sex: Female
  Weight: 63.2 kg

DRUGS (3)
  1. NORVASC [Suspect]
     Indication: RAYNAUD'S PHENOMENON
     Route: 048
     Dates: start: 20080303
  2. INDERAL LA [Concomitant]
  3. IBUPROFEN TABLETS [Concomitant]

REACTIONS (1)
  - HEADACHE [None]
